FAERS Safety Report 14024391 (Version 1)
Quarter: 2017Q3

REPORT INFORMATION
  Report Type: Spontaneous
  Country: DE (occurrence: DE)
  Receive Date: 20170929
  Receipt Date: 20170929
  Transmission Date: 20171128
  Serious: Yes (Other)
  Sender: FDA-Public Use
  Company Number: DE-BAYER-2017-182324

PATIENT
  Age: 37 Year
  Sex: Female

DRUGS (1)
  1. MIRENA [Suspect]
     Active Substance: LEVONORGESTREL
     Indication: CONTRACEPTION
     Dosage: 20 MCG/24HR, CONT
     Route: 015
     Dates: start: 201203

REACTIONS (6)
  - Hot flush [None]
  - Restlessness [None]
  - Suicidal ideation [None]
  - Weight increased [None]
  - Anhedonia [Recovered/Resolved]
  - Depression [None]

NARRATIVE: CASE EVENT DATE: 201209
